FAERS Safety Report 10199716 (Version 1)
Quarter: 2014Q2

REPORT INFORMATION
  Report Type: Spontaneous
  Country: US (occurrence: US)
  Receive Date: 20140527
  Receipt Date: 20140527
  Transmission Date: 20141212
  Serious: No
  Sender: FDA-Public Use
  Company Number: US-PFIZER INC-2014141088

PATIENT
  Age: 72 Year
  Sex: Female
  Weight: 121.54 kg

DRUGS (15)
  1. XELJANZ [Suspect]
     Indication: RHEUMATOID ARTHRITIS
     Dosage: 5 MG, 2X/DAY
     Route: 048
     Dates: start: 201404
  2. AMARYL [Concomitant]
     Dosage: UNK
  3. AMLODIPINE [Concomitant]
     Dosage: UNK
  4. BACTROBAN [Concomitant]
     Dosage: UNK
  5. PHISOHEX [Concomitant]
     Dosage: UNK
  6. CLARITIN-D [Concomitant]
     Dosage: UNK
  7. CYMBALTA [Concomitant]
     Dosage: UNK
  8. FLONASE [Concomitant]
     Dosage: UNK
  9. GABAPENTIN [Concomitant]
     Dosage: UNK
  10. HYDROCODONE W/ACETAMINOPHEN [Concomitant]
     Dosage: UNK
  11. LORAZEPAM [Concomitant]
     Dosage: UNK
  12. HYDROXYCHLOROQUINE [Concomitant]
     Dosage: UNK
  13. PROBIOTICS [Concomitant]
     Dosage: UNK
  14. TRAVATAN [Concomitant]
     Dosage: UNK
  15. ATENOLOL [Concomitant]
     Dosage: UNK

REACTIONS (11)
  - Sinus disorder [Recovering/Resolving]
  - Hypersensitivity [Recovering/Resolving]
  - Rhinorrhoea [Recovering/Resolving]
  - Nasal congestion [Recovering/Resolving]
  - Swelling face [Recovering/Resolving]
  - Sinus congestion [Recovering/Resolving]
  - Cough [Recovering/Resolving]
  - Dysphonia [Recovering/Resolving]
  - Pain in extremity [Not Recovered/Not Resolved]
  - Limb injury [Not Recovered/Not Resolved]
  - Activities of daily living impaired [Not Recovered/Not Resolved]
